FAERS Safety Report 5054072-4 (Version None)
Quarter: 2006Q3

REPORT INFORMATION
  Report Type: 
  Country: None (occurrence: None)
  Receive Date: 20060713
  Receipt Date: 20060627
  Transmission Date: 20061208
  Serious: Yes (Other)
  Sender: FDA-Public Use
  Company Number: ACO_0243_2006

PATIENT
  Age: 71 Year
  Sex: Male

DRUGS (12)
  1. ZANAFLEX [Suspect]
     Indication: NEURALGIA
     Dosage: VAR 3X/DAY PO
     Route: 048
     Dates: start: 20060613, end: 20060622
  2. LYRICA [Suspect]
     Indication: NEURALGIA
     Dosage: 75 MG QDAY PO
     Route: 048
     Dates: start: 20060622, end: 20060624
  3. ACTONEL [Concomitant]
  4. CILAZAPRIL [Concomitant]
  5. PANTOPRAZOLE SODIUM [Concomitant]
  6. COMTAN [Concomitant]
  7. DETROL LA [Concomitant]
  8. CLONAZEPAM [Concomitant]
  9. EZETROL [Concomitant]
  10. SINEMET [Concomitant]
  11. SEROQUEL [Concomitant]
  12. ENDOCET [Concomitant]

REACTIONS (5)
  - ABDOMINAL PAIN [None]
  - CONVULSION [None]
  - DELIRIUM [None]
  - FALL [None]
  - JOINT CONTRACTURE [None]
